FAERS Safety Report 4816885-0 (Version None)
Quarter: 2005Q4

REPORT INFORMATION
  Report Type: 
  Country: None (occurrence: None)
  Receive Date: 20051031
  Receipt Date: 20051031
  Transmission Date: 20060501
  Serious: Yes (Hospitalization)
  Sender: FDA-Public Use
  Company Number: None

PATIENT
  Age: 54 Year
  Sex: Male

DRUGS (7)
  1. WARFARIN SODIUM [Suspect]
     Indication: DEEP VEIN THROMBOSIS
     Dosage: 7.5 MG QD
     Dates: start: 20050703
  2. DALTEPARIN [Concomitant]
  3. POTASSIUM CHLORIDE [Concomitant]
  4. DSS [Concomitant]
  5. METOCLOPRAMIDE [Concomitant]
  6. PROCHLORPERAZINE [Concomitant]
  7. URSODIOL [Concomitant]

REACTIONS (1)
  - INTERNATIONAL NORMALISED RATIO INCREASED [None]
